FAERS Safety Report 9106162 (Version 2)
Quarter: 2013Q1

REPORT INFORMATION
  Report Type: Spontaneous
  Country: US (occurrence: US)
  Receive Date: 20130220
  Receipt Date: 20130226
  Transmission Date: 20140127
  Serious: No
  Sender: FDA-Public Use
  Company Number: US-VERTEX PHARMACEUTICALS INC.-2013-002053

PATIENT
  Age: 54 None
  Sex: Male
  Weight: 71 kg

DRUGS (6)
  1. INCIVEK [Suspect]
     Indication: HEPATITIS C
     Dosage: 750 MG, TID
     Route: 048
     Dates: start: 20130125
  2. PEGASYS [Suspect]
     Indication: HEPATITIS C
     Dosage: 180 ?G, QW
     Route: 058
     Dates: start: 20121206
  3. COPEGUS [Suspect]
     Indication: HEPATITIS C
     Dosage: 3 TABS IN A.M. AND 2 TABS IN P.M.
     Route: 048
     Dates: start: 20121205
  4. TRAZODONE [Concomitant]
     Dosage: 50 MG, QD
     Route: 048
  5. RISPERDAL [Concomitant]
     Indication: BIPOLAR DISORDER
     Dosage: 1 MG, QD
     Route: 048
  6. SUCRALFATE [Concomitant]
     Route: 048

REACTIONS (20)
  - Electrocardiogram abnormal [Not Recovered/Not Resolved]
  - Blood test abnormal [Not Recovered/Not Resolved]
  - Dyspnoea [Not Recovered/Not Resolved]
  - Dizziness [Not Recovered/Not Resolved]
  - Chromaturia [Not Recovered/Not Resolved]
  - Epistaxis [Not Recovered/Not Resolved]
  - Memory impairment [Not Recovered/Not Resolved]
  - Dysarthria [Not Recovered/Not Resolved]
  - Salivary hypersecretion [Not Recovered/Not Resolved]
  - Eyelid pain [Not Recovered/Not Resolved]
  - Hyperchlorhydria [Not Recovered/Not Resolved]
  - Abdominal pain [Not Recovered/Not Resolved]
  - Pain [Not Recovered/Not Resolved]
  - Insomnia [Not Recovered/Not Resolved]
  - Dry skin [Not Recovered/Not Resolved]
  - Weight decreased [Not Recovered/Not Resolved]
  - Asthenia [Not Recovered/Not Resolved]
  - Diarrhoea [Not Recovered/Not Resolved]
  - Nausea [Not Recovered/Not Resolved]
  - Vomiting [Not Recovered/Not Resolved]
